FAERS Safety Report 19581937 (Version 1)
Quarter: 2021Q3

REPORT INFORMATION
  Report Type: Spontaneous
  Country: US (occurrence: US)
  Receive Date: 20210719
  Receipt Date: 20210719
  Transmission Date: 20211014
  Serious: Yes (Other)
  Sender: FDA-Public Use
  Company Number: US-OTSUKA-2019_003212

PATIENT
  Age: 25 Year
  Sex: Female

DRUGS (5)
  1. ABILIFY MAINTENA [Suspect]
     Active Substance: ARIPIPRAZOLE
     Indication: BIPOLAR DISORDER
     Dosage: 400 MG,EVERY 4 WEEK
     Route: 030
  2. KLONOPIN [Suspect]
     Active Substance: CLONAZEPAM
     Indication: PRODUCT USED FOR UNKNOWN INDICATION
     Dosage: UNK
     Route: 065
  3. NEURONTIN [Suspect]
     Active Substance: GABAPENTIN
     Indication: PRODUCT USED FOR UNKNOWN INDICATION
     Dosage: UNK
     Route: 065
  4. ABILIFY MAINTENA [Suspect]
     Active Substance: ARIPIPRAZOLE
     Indication: BIPOLAR DISORDER
     Dosage: 400 MG, EVERY 4 WEEKS
     Route: 030
  5. ABILIFY [Suspect]
     Active Substance: ARIPIPRAZOLE
     Indication: BIPOLAR DISORDER
     Dosage: UNK
     Route: 065

REACTIONS (11)
  - Suicide attempt [Recovered/Resolved]
  - Drug intolerance [Unknown]
  - Back pain [Recovered/Resolved]
  - Injection site pain [Recovered/Resolved]
  - Hypoglycaemia [Recovered/Resolved]
  - Pancreatitis [Unknown]
  - Intentional overdose [Unknown]
  - Restless legs syndrome [Recovered/Resolved]
  - Insomnia [Recovered/Resolved]
  - Product use in unapproved indication [Unknown]
  - Sedation [Recovered/Resolved]

NARRATIVE: CASE EVENT DATE: 20090105
